FAERS Safety Report 8157115-4 (Version None)
Quarter: 2012Q1

REPORT INFORMATION
  Report Type: 
  Country: None (occurrence: None)
  Receive Date: 20120222
  Receipt Date: 20120214
  Transmission Date: 20120608
  Serious: Yes (Other)
  Sender: FDA-Public Use
  Company Number: DE-NOVOPROD-345009

PATIENT
  Age: 57 Year
  Sex: Female

DRUGS (2)
  1. TAMOXIFEN CITRATE [Concomitant]
     Indication: BREAST CANCER
  2. VICTOZA [Suspect]
     Indication: DIABETES MELLITUS

REACTIONS (2)
  - RENAL CELL CARCINOMA [None]
  - METASTASIS [None]
